FAERS Safety Report 14185468 (Version 1)
Quarter: 2017Q4

REPORT INFORMATION
  Report Type: Spontaneous
  Country: US (occurrence: None)
  Receive Date: 20171112
  Receipt Date: 20171112
  Transmission Date: 20180321
  Serious: Yes (Life-Threatening, Hospitalization, Disabling)
  Sender: FDA-Public Use
  Company Number: None

PATIENT
  Age: 56 Year
  Sex: Female
  Weight: 92.53 kg

DRUGS (4)
  1. SYNTHROID [Concomitant]
     Active Substance: LEVOTHYROXINE SODIUM
  2. EXCEDRIN MIGRAINE [Concomitant]
     Active Substance: ACETAMINOPHEN\ASPIRIN\CAFFEINE
  3. BOTOX [Suspect]
     Active Substance: ONABOTULINUMTOXINA
  4. CYMBALTA [Concomitant]
     Active Substance: DULOXETINE HYDROCHLORIDE

REACTIONS (16)
  - Dyspnoea [None]
  - Eyelid ptosis [None]
  - Dysphonia [None]
  - Oropharyngeal pain [None]
  - Influenza like illness [None]
  - Discomfort [None]
  - Cough [None]
  - Lip disorder [None]
  - Syncope [None]
  - Eyelid oedema [None]
  - Visual impairment [None]
  - Dysphagia [None]
  - Myalgia [None]
  - Nausea [None]
  - Headache [None]
  - Alopecia [None]

NARRATIVE: CASE EVENT DATE: 20140310
